FAERS Safety Report 4810826-8 (Version None)
Quarter: 2005Q4

REPORT INFORMATION
  Report Type: 
  Country: None (occurrence: None)
  Receive Date: 20051024
  Receipt Date: 20051012
  Transmission Date: 20060501
  Serious: Yes (Other)
  Sender: FDA-Public Use
  Company Number: 2005141689

PATIENT
  Sex: Female
  Weight: 108.8633 kg

DRUGS (10)
  1. ZOLOFT [Suspect]
     Indication: DEPRESSION
     Dosage: 150 MG (50 MG, 2 IN 1 D), ORAL
     Route: 048
     Dates: start: 20000101
  2. ARTHROTEC [Suspect]
     Indication: ILL-DEFINED DISORDER
     Dosage: ORAL
     Route: 048
  3. KLONOPIN [Suspect]
     Indication: ILL-DEFINED DISORDER
  4. PEPCID [Suspect]
     Indication: ILL-DEFINED DISORDER
  5. OXYCODONE HCL [Suspect]
     Indication: ILL-DEFINED DISORDER
  6. VYTORIN [Suspect]
     Indication: ILL-DEFINED DISORDER
  7. TOPAMAX [Concomitant]
  8. TRILISATE (CHOLINE SALICYLATE, MAGNESIUM SALICYLATE) [Concomitant]
  9. VITAMIN C (VITAMIN C) [Concomitant]
  10. VITAMIN A (NATURAL) CAP [Concomitant]

REACTIONS (6)
  - DEPRESSION [None]
  - DRUG INEFFECTIVE [None]
  - GASTROINTESTINAL HYPERMOTILITY [None]
  - GASTROINTESTINAL HYPOMOTILITY [None]
  - INCISIONAL HERNIA [None]
  - MEDICATION RESIDUE [None]
